FAERS Safety Report 5126173-3 (Version None)
Quarter: 2006Q3

REPORT INFORMATION
  Report Type: 
  Country: None (occurrence: None)
  Receive Date: 20060823
  Receipt Date: 20060124
  Transmission Date: 20061208
  Serious: Yes (Other)
  Sender: FDA-Public Use
  Company Number: 2006005577

PATIENT
  Age: 49 Year
  Sex: Male
  Weight: 226.7985 kg

DRUGS (7)
  1. NORVASC [Suspect]
     Indication: HYPERTENSION
     Dosage: 10 MG (10 MG,1 IN 1 D),ORAL
     Route: 048
     Dates: start: 20050101
  2. TIAZAC [Concomitant]
  3. CATAPRES [Concomitant]
  4. LASIX [Concomitant]
  5. PROTONIX [Concomitant]
  6. DILAUDID [Concomitant]
  7. MOBIC [Concomitant]

REACTIONS (2)
  - HYPERTENSION [None]
  - WEIGHT INCREASED [None]
